FAERS Safety Report 8882382 (Version 1)
Quarter: 2012Q4

REPORT INFORMATION
  Report Type: 
  Country: US (occurrence: US)
  Receive Date: 20121105
  Receipt Date: 20121105
  Transmission Date: 20130627
  Serious: Yes (Death)
  Sender: FDA-Public Use
  Company Number: US-JNJFOC-20121015362

PATIENT

DRUGS (5)
  1. RISPERIDONE [Suspect]
     Indication: DEMENTIA ALZHEIMER^S TYPE
     Dosage: Doses 0.25 mg, 0.5 mg 1 mg, 2 mg, 3 mg
     Route: 048
  2. RISPERIDONE [Suspect]
     Indication: DEMENTIA ALZHEIMER^S TYPE
     Dosage: Doses 0.25 mg, 0.5 mg 1 mg, 2 mg, 3 mg
     Route: 048
  3. RISPERIDONE [Suspect]
     Indication: DEMENTIA ALZHEIMER^S TYPE
     Dosage: Doses 0.25 mg, 0.5 mg 1 mg, 2 mg, 3 mg
     Route: 048
  4. RISPERIDONE [Suspect]
     Indication: DEMENTIA ALZHEIMER^S TYPE
     Dosage: Doses 0.25 mg, 0.5 mg 1 mg, 2 mg, 3 mg
     Route: 048
  5. RISPERIDONE [Suspect]
     Indication: DEMENTIA ALZHEIMER^S TYPE
     Dosage: Doses 0.25 mg, 0.5 mg 1 mg, 2 mg, 3 mg
     Route: 048

REACTIONS (18)
  - Death [Fatal]
  - Aggression [Unknown]
  - Agitation [Unknown]
  - Condition aggravated [Unknown]
  - Nervous system disorder [Unknown]
  - Lung disorder [Unknown]
  - Fracture [Unknown]
  - Fall [Unknown]
  - Restlessness [Unknown]
  - Cardiovascular disorder [Unknown]
  - Extrapyramidal disorder [Unknown]
  - Akathisia [Unknown]
  - Sedation [Unknown]
  - Insomnia [Unknown]
  - Confusional state [Unknown]
  - Vomiting [Unknown]
  - Nausea [Unknown]
  - Drug ineffective [Unknown]
